FAERS Safety Report 14685633 (Version 2)
Quarter: 2018Q2

REPORT INFORMATION
  Report Type: Report from Study
  Country: DE (occurrence: DE)
  Receive Date: 20180327
  Receipt Date: 20180416
  Transmission Date: 20180711
  Serious: Yes (Death)
  Sender: FDA-Public Use
  Company Number: DE-BEH-2018089098

PATIENT
  Age: 62 Year
  Sex: Male
  Weight: 78 kg

DRUGS (7)
  1. PRIVIGEN [Suspect]
     Active Substance: HUMAN IMMUNOGLOBULIN G
     Dosage: 30 G, TOT
     Route: 065
     Dates: start: 20171228, end: 20171228
  2. STRIBILD [Concomitant]
     Active Substance: COBICISTAT\ELVITEGRAVIR\EMTRICITABINE\TENOFOVIR DISOPROXIL FUMARATE
  3. LHRH [Concomitant]
  4. PRIVIGEN [Suspect]
     Active Substance: HUMAN IMMUNOGLOBULIN G
     Indication: CHRONIC INFLAMMATORY DEMYELINATING POLYRADICULONEUROPATHY
     Dosage: 30 G, TOT
     Route: 065
     Dates: start: 20171130, end: 20171130
  5. ASA [Concomitant]
     Active Substance: ASPIRIN
  6. MIRTAZAPIN [Concomitant]
     Active Substance: MIRTAZAPINE
  7. PRIVIGEN [Suspect]
     Active Substance: HUMAN IMMUNOGLOBULIN G
     Dosage: 30 G, TOT
     Route: 065
     Dates: start: 20180125, end: 20180125

REACTIONS (3)
  - Mesenteric artery thrombosis [Fatal]
  - Sepsis [Fatal]
  - Prostate cancer [Fatal]

NARRATIVE: CASE EVENT DATE: 20180128
